FAERS Safety Report 5755775-6 (Version None)
Quarter: 2008Q2

REPORT INFORMATION
  Report Type: 
  Country: None (occurrence: None)
  Receive Date: 20080602
  Receipt Date: 20080522
  Transmission Date: 20081010
  Serious: Yes (Hospitalization)
  Sender: FDA-Public Use
  Company Number: US-AVENTIS-200814793GDDC

PATIENT
  Age: 18 Year
  Sex: Female

DRUGS (3)
  1. DDAVP [Suspect]
     Indication: DIABETES INSIPIDUS
     Route: 045
  2. DDAVP [Suspect]
     Route: 045
  3. DDAVP [Suspect]
     Route: 045

REACTIONS (2)
  - DRUG EXPOSURE DURING PREGNANCY [None]
  - PULMONARY OEDEMA [None]
